FAERS Safety Report 19079038 (Version 1)
Quarter: 2021Q1

REPORT INFORMATION
  Report Type: Spontaneous
  Country: PL (occurrence: PL)
  Receive Date: 20210331
  Receipt Date: 20210331
  Transmission Date: 20210420
  Serious: Yes (Death, Life-Threatening)
  Sender: FDA-Public Use
  Company Number: NVSC2021PL072596

PATIENT
  Age: 74 Year
  Sex: Male
  Weight: 80 kg

DRUGS (5)
  1. CISPLATIN. [Concomitant]
     Active Substance: CISPLATIN
     Indication: BLADDER CANCER
     Dosage: 109 MG
     Route: 040
     Dates: start: 20210310
  2. VINBLASTINE [Concomitant]
     Active Substance: VINBLASTINE
     Indication: BLADDER CANCER
     Dosage: 5.6 MG
     Route: 040
     Dates: start: 20210310
  3. METHOTREXAT [Concomitant]
     Active Substance: METHOTREXATE
     Indication: BLADDER CANCER
     Dosage: 56 MG
     Route: 040
     Dates: start: 20210309
  4. DOXORUBICIN [Concomitant]
     Active Substance: DOXORUBICIN
     Indication: BLADDER CANCER
     Route: 040
     Dates: start: 20210310, end: 20210310
  5. ZIEXTENZO [Suspect]
     Active Substance: PEGFILGRASTIM-BMEZ
     Indication: BLADDER CANCER
     Dosage: 6 MG
     Route: 058
     Dates: start: 20210311, end: 20210311

REACTIONS (2)
  - Anaphylactic shock [Fatal]
  - Acute respiratory failure [Fatal]

NARRATIVE: CASE EVENT DATE: 20210312
